FAERS Safety Report 16390581 (Version 1)
Quarter: 2019Q2

REPORT INFORMATION
  Report Type: Report from Study
  Country: BR (occurrence: BR)
  Receive Date: 20190604
  Receipt Date: 20190604
  Transmission Date: 20190711
  Serious: Yes (Hospitalization, Other)
  Sender: FDA-Public Use
  Company Number: BR-ALEXION PHARMACEUTICALS INC.-A201900838

PATIENT
  Age: 4 Year
  Sex: Female

DRUGS (2)
  1. SOLIRIS [Suspect]
     Active Substance: ECULIZUMAB
     Dosage: 300 MG, Q2W
     Route: 042
     Dates: start: 20170103, end: 2018
  2. SOLIRIS [Suspect]
     Active Substance: ECULIZUMAB
     Indication: ATYPICAL HAEMOLYTIC URAEMIC SYNDROME
     Dosage: 600 MG, UNK
     Route: 042
     Dates: start: 20161227, end: 20161227

REACTIONS (12)
  - Thrombophlebitis [Unknown]
  - Osteomyelitis [Unknown]
  - Gait inability [Recovering/Resolving]
  - Oral herpes [Recovered/Resolved]
  - Stomatitis [Recovered/Resolved]
  - Cellulitis [Unknown]
  - Device related infection [Unknown]
  - Thrombolysis [Unknown]
  - Pain in extremity [Recovering/Resolving]
  - Tonsillitis [Recovered/Resolved]
  - Hypercoagulation [Unknown]
  - Bone disorder [Unknown]

NARRATIVE: CASE EVENT DATE: 201811
